FAERS Safety Report 8623598-6 (Version None)
Quarter: 2012Q3

REPORT INFORMATION
  Report Type: 
  Country: None (occurrence: None)
  Receive Date: 20120827
  Receipt Date: 20120820
  Transmission Date: 20120928
  Serious: Yes (Other)
  Sender: FDA-Public Use
  Company Number: CN-ASTELLAS-2012JP007843

PATIENT
  Age: 54 Year
  Sex: Female

DRUGS (3)
  1. CELLCEPT [Concomitant]
     Route: 065
  2. TACROLIMUS [Suspect]
     Indication: RENAL TRANSPLANT
     Dosage: UNK
     Route: 048
     Dates: start: 20090716
  3. PREDNISONE TAB [Concomitant]
     Route: 065

REACTIONS (2)
  - CATARACT [None]
  - DYSACUSIS [None]
